FAERS Safety Report 8728518 (Version 2)
Quarter: 2012Q4

REPORT INFORMATION
  Report Type: Report from Study
  Country: DE (occurrence: DE)
  Receive Date: 20120817
  Receipt Date: 20120918
  Transmission Date: 20130627
  Serious: Yes (Death, Hospitalization, Other)
  Sender: FDA-Public Use
  Company Number: DE-GENZYME-CAMP-1002311

PATIENT
  Age: 60 None
  Sex: Female
  Weight: 54 kg

DRUGS (9)
  1. MABCAMPATH [Suspect]
     Indication: T-CELL LYMPHOMA
     Dosage: UNK; 2 times
     Route: 065
     Dates: start: 20081217
  2. MABCAMPATH [Suspect]
     Dosage: UNK; 2 times
     Route: 065
  3. MABCAMPATH [Suspect]
     Dosage: UNK; 2 times
     Route: 065
     Dates: end: 20090116
  4. RAMIPRIL [Concomitant]
     Indication: CONGESTIVE CARDIOMYOPATHY
     Dosage: UNK
     Route: 065
  5. BISOPROLOL [Concomitant]
     Indication: CONGESTIVE CARDIOMYOPATHY
     Dosage: UNK
     Route: 065
  6. CYCLOPHOSPHAMIDE [Concomitant]
     Indication: T-CELL LYMPHOMA
     Dosage: UNK
     Route: 065
  7. DOXORUBICIN [Concomitant]
     Indication: T-CELL LYMPHOMA
     Dosage: UNK
     Route: 065
  8. VINCRISTINE [Concomitant]
     Indication: T-CELL LYMPHOMA
     Dosage: UNK
     Route: 065
  9. PREDNISONE [Concomitant]
     Indication: T-CELL LYMPHOMA
     Dosage: UNK
     Route: 065

REACTIONS (7)
  - Asthenia [Recovered/Resolved]
  - Thrombocytopenia [Recovered/Resolved]
  - Dyspnoea [Unknown]
  - Polyneuropathy [Unknown]
  - T-cell lymphoma [Fatal]
  - Diarrhoea [Recovered/Resolved]
  - Decreased appetite [Recovered/Resolved]
